FAERS Safety Report 10097604 (Version 1)
Quarter: 2014Q2

REPORT INFORMATION
  Report Type: Spontaneous
  Country: US (occurrence: US)
  Receive Date: 20140423
  Receipt Date: 20140423
  Transmission Date: 20141212
  Serious: No
  Sender: FDA-Public Use
  Company Number: US-BIOGENIDEC-2014BI033424

PATIENT
  Age: 51 Year
  Sex: Female

DRUGS (3)
  1. TECFIDERA [Suspect]
     Indication: MULTIPLE SCLEROSIS
     Route: 048
  2. AVONEX [Concomitant]
     Indication: MULTIPLE SCLEROSIS
     Route: 030
     Dates: start: 20100807, end: 20130801
  3. AVONEX [Concomitant]
     Indication: MULTIPLE SCLEROSIS
     Route: 030

REACTIONS (20)
  - Hypoaesthesia [Unknown]
  - Dyspnoea [Unknown]
  - Blindness transient [Recovered/Resolved]
  - Visual impairment [Unknown]
  - Drug intolerance [Unknown]
  - Weight decreased [Not Recovered/Not Resolved]
  - Blood pressure decreased [Unknown]
  - Multiple sclerosis relapse [Unknown]
  - Anxiety [Not Recovered/Not Resolved]
  - Panic reaction [Unknown]
  - General symptom [Unknown]
  - Fear [Unknown]
  - Paranoia [Unknown]
  - Nervousness [Unknown]
  - Disorientation [Unknown]
  - Disturbance in attention [Unknown]
  - Asthenia [Unknown]
  - Tachyphrenia [Unknown]
  - Impaired driving ability [Unknown]
  - Feeling of despair [Unknown]
